FAERS Safety Report 10162967 (Version 1)
Quarter: 2014Q2

REPORT INFORMATION
  Report Type: Spontaneous
  Country: US (occurrence: US)
  Receive Date: 20140509
  Receipt Date: 20140509
  Transmission Date: 20141212
  Serious: Yes (Other)
  Sender: FDA-Public Use
  Company Number: US-PFIZER INC-2014124717

PATIENT
  Sex: Male

DRUGS (2)
  1. GLIPIZIDE [Suspect]
     Dosage: 10 MG, 1X/DAY
  2. METFORMIN HCL [Suspect]
     Dosage: 1000 MG, 2X/DAY

REACTIONS (1)
  - Drug ineffective [Unknown]
